FAERS Safety Report 26093978 (Version 3)
Quarter: 2025Q4

REPORT INFORMATION
  Report Type: Report from Study
  Country: EU (occurrence: EU)
  Receive Date: 20251126
  Receipt Date: 20251204
  Transmission Date: 20260118
  Serious: Yes (Hospitalization)
  Sender: ABBVIE
  Company Number: EU-ABBVIE-6562899

PATIENT
  Age: 75 Year
  Sex: Male

DRUGS (2)
  1. CARBIDOPA\LEVODOPA [Suspect]
     Active Substance: CARBIDOPA\LEVODOPA
     Indication: Parkinson^s disease
     Dosage: MD: 13.0ML ?CR: 4.4ML/H ?ED: 2.0ML
     Route: 050
     Dates: start: 20240830
  2. CARBIDOPA\LEVODOPA [Suspect]
     Active Substance: CARBIDOPA\LEVODOPA

REACTIONS (18)
  - Respiratory tract infection [Recovered/Resolved]
  - Feeding disorder [Recovered/Resolved]
  - General physical health deterioration [Unknown]
  - Malaise [Recovered/Resolved]
  - Cachexia [Recovered/Resolved]
  - Gastrointestinal tube insertion [Not Recovered/Not Resolved]
  - Febrile convulsion [Recovered/Resolved]
  - Increased upper airway secretion [Recovered/Resolved]
  - Oxygen saturation decreased [Recovered/Resolved]
  - Blood bilirubin increased [Recovered/Resolved]
  - Haematocrit decreased [Recovered/Resolved]
  - Oedema peripheral [Recovered/Resolved]
  - Movement disorder [Recovered/Resolved]
  - Fine motor skill dysfunction [Not Recovered/Not Resolved]
  - Weight decreased [Recovered/Resolved]
  - Communication disorder [Unknown]
  - Mobility decreased [Recovered/Resolved]
  - Feeding disorder [Not Recovered/Not Resolved]

NARRATIVE: CASE EVENT DATE: 20251101
